FAERS Safety Report 15678287 (Version 1)
Quarter: 2018Q4

REPORT INFORMATION
  Report Type: Spontaneous
  Country: FR (occurrence: FR)
  Receive Date: 20181201
  Receipt Date: 20181201
  Transmission Date: 20190205
  Serious: Yes (Life-Threatening)
  Sender: FDA-Public Use
  Company Number: FR-TEVA-2018-FR-980895

PATIENT
  Age: 59 Year
  Sex: Male

DRUGS (1)
  1. EZETIMIBE. [Suspect]
     Active Substance: EZETIMIBE
     Indication: HYPERCHOLESTEROLAEMIA
     Dosage: 10 MILLIGRAM DAILY;
     Route: 048
     Dates: start: 20170927

REACTIONS (2)
  - Tongue oedema [Recovered/Resolved]
  - Lip oedema [Recovered/Resolved]

NARRATIVE: CASE EVENT DATE: 20171004
